FAERS Safety Report 24048422 (Version 4)
Quarter: 2025Q3

REPORT INFORMATION
  Report Type: Spontaneous
  Country: EU (occurrence: EU)
  Receive Date: 20240704
  Receipt Date: 20250804
  Transmission Date: 20251020
  Serious: Yes (Death, Hospitalization, Other)
  Sender: AUROBINDO
  Company Number: EU-AUROBINDO-AUR-APL-2024-032048

PATIENT
  Age: 28 Year
  Sex: Male

DRUGS (20)
  1. AMOXICILLIN\CLAVULANIC ACID [Suspect]
     Active Substance: AMOXICILLIN\CLAVULANIC ACID
     Indication: Antibiotic therapy
     Route: 065
  2. BUDESONIDE [Suspect]
     Active Substance: BUDESONIDE
     Indication: Pyrexia
     Dates: start: 2023, end: 2023
  3. BUDESONIDE [Suspect]
     Active Substance: BUDESONIDE
     Indication: Asthenia
  4. BUDESONIDE [Suspect]
     Active Substance: BUDESONIDE
     Indication: Cough
  5. BUDESONIDE [Suspect]
     Active Substance: BUDESONIDE
     Indication: Acute respiratory distress syndrome
  6. LEVOFLOXACIN [Suspect]
     Active Substance: LEVOFLOXACIN
     Indication: Antibiotic therapy
     Route: 065
  7. NAPROXEN [Suspect]
     Active Substance: NAPROXEN
     Indication: Pyrexia
     Route: 065
     Dates: start: 2023, end: 2023
  8. NAPROXEN [Suspect]
     Active Substance: NAPROXEN
     Indication: Asthenia
  9. NAPROXEN [Suspect]
     Active Substance: NAPROXEN
     Indication: Cough
  10. NAPROXEN [Suspect]
     Active Substance: NAPROXEN
     Indication: Acute respiratory distress syndrome
  11. CILASTATIN [Suspect]
     Active Substance: CILASTATIN
     Indication: Antibiotic therapy
     Route: 065
  12. MEROPENEM [Concomitant]
     Active Substance: MEROPENEM
     Indication: Klebsiella test positive
     Route: 065
  13. TIGECYCLINE [Concomitant]
     Active Substance: TIGECYCLINE
     Indication: Antibiotic therapy
     Route: 065
  14. AMIKACIN [Concomitant]
     Active Substance: AMIKACIN
     Indication: Antibiotic therapy
     Route: 065
  15. IMIPENEM [Concomitant]
     Active Substance: IMIPENEM
     Indication: Antibiotic therapy
     Route: 065
  16. Immunoglobulin [Concomitant]
     Indication: Coagulopathy
     Route: 065
  17. Immunoglobulin [Concomitant]
     Indication: Anaemia
  18. PLATELETS [Concomitant]
     Active Substance: HUMAN PLATELET, ALLOGENIC
     Indication: Coagulopathy
     Route: 065
  19. PLATELETS [Concomitant]
     Active Substance: HUMAN PLATELET, ALLOGENIC
     Indication: Anaemia
  20. ROCURONIUM [Concomitant]
     Active Substance: ROCURONIUM BROMIDE
     Indication: Hypotonia
     Route: 042

REACTIONS (5)
  - Drug ineffective [Fatal]
  - Death [Fatal]
  - Lower respiratory tract infection [Unknown]
  - Tachycardia [Unknown]
  - General physical health deterioration [Unknown]

NARRATIVE: CASE EVENT DATE: 20230101
